FAERS Safety Report 4364857-5 (Version None)
Quarter: 2004Q2

REPORT INFORMATION
  Report Type: 
  Country: None (occurrence: None)
  Receive Date: 20040526
  Receipt Date: 20040227
  Transmission Date: 20050107
  Serious: Yes (Hospitalization)
  Sender: FDA-Public Use
  Company Number: 200411445JP

PATIENT
  Age: 65 Year
  Sex: Female

DRUGS (10)
  1. ARAVA [Suspect]
     Indication: RHEUMATOID ARTHRITIS
     Route: 048
     Dates: start: 20031004, end: 20040305
  2. PREDONINE [Concomitant]
     Indication: RHEUMATOID ARTHRITIS
     Route: 048
     Dates: start: 20010101, end: 20040319
  3. MOVER [Concomitant]
     Indication: RHEUMATOID ARTHRITIS
     Route: 048
     Dates: start: 20010101, end: 20030926
  4. RIMATIL [Concomitant]
     Indication: RHEUMATOID ARTHRITIS
     Route: 048
     Dates: start: 20010101, end: 20030926
  5. LOXONIN [Concomitant]
     Indication: RHEUMATOID ARTHRITIS
     Route: 048
     Dates: end: 20040319
  6. DIPYRIDAMOLE [Concomitant]
     Indication: BRONCHITIS
     Route: 048
     Dates: end: 20040319
  7. APLACE [Concomitant]
     Indication: GASTRITIS
     Route: 048
     Dates: end: 20040319
  8. APLACE [Concomitant]
     Indication: PROPHYLAXIS
     Route: 048
     Dates: end: 20040319
  9. THEO-DUR [Concomitant]
     Indication: BRONCHITIS
     Route: 048
     Dates: end: 20040319
  10. SELTOUCH [Concomitant]
     Indication: RHEUMATOID ARTHRITIS
     Route: 003
     Dates: end: 20040319

REACTIONS (10)
  - BLOOD GLUCOSE INCREASED [None]
  - BRONCHIECTASIS [None]
  - BRONCHITIS CHRONIC [None]
  - DIARRHOEA [None]
  - INFLUENZA SEROLOGY POSITIVE [None]
  - PLEURAL EFFUSION [None]
  - PNEUMONIA [None]
  - PYOTHORAX [None]
  - PYREXIA [None]
  - RASH [None]
